FAERS Safety Report 8325099 (Version 4)
Quarter: 2013Q4

REPORT INFORMATION
  Report Type: Report from Study
  Country: US (occurrence: US)
  Receive Date: 20120106
  Receipt Date: 20131011
  Transmission Date: 20140711
  Serious: Yes (Hospitalization)
  Sender: FDA-Public Use
  Company Number: US-JNJFOC-20111212609

PATIENT
  Age: 16 Year
  Sex: Male
  Weight: 49.7 kg

DRUGS (3)
  1. REMICADE [Suspect]
     Indication: COLITIS ULCERATIVE
     Route: 042
     Dates: start: 20070804
  2. HUMIRA [Concomitant]
     Route: 065
     Dates: start: 20090417
  3. AZATHIOPRINE [Concomitant]
     Route: 065

REACTIONS (2)
  - Enterocutaneous fistula [Recovered/Resolved]
  - Abscess [Recovered/Resolved]
